FAERS Safety Report 11689368 (Version 1)
Quarter: 2015Q4

REPORT INFORMATION
  Report Type: Spontaneous
  Country: US (occurrence: US)
  Receive Date: 20151102
  Receipt Date: 20151102
  Transmission Date: 20160304
  Serious: No
  Sender: FDA-Public Use
  Company Number: US-TEVA-605149USA

PATIENT
  Sex: Female

DRUGS (1)
  1. COPAXONE [Suspect]
     Active Substance: GLATIRAMER ACETATE
     Indication: MULTIPLE SCLEROSIS
     Dosage: UNKNOWN FORM STRENGTH
     Dates: end: 2006

REACTIONS (4)
  - Lipoma [Recovered/Resolved]
  - Injection site reaction [Recovered/Resolved]
  - Chest pain [Recovered/Resolved]
  - Adverse event [Recovered/Resolved]
